FAERS Safety Report 18973568 (Version 1)
Quarter: 2021Q1

REPORT INFORMATION
  Report Type: Spontaneous
  Country: GB (occurrence: GB)
  Receive Date: 20210305
  Receipt Date: 20210305
  Transmission Date: 20210420
  Serious: Yes (Other)
  Sender: FDA-Public Use
  Company Number: GB-VERTEX PHARMACEUTICALS-2021-003512

PATIENT
  Sex: Male

DRUGS (4)
  1. KAFTRIO [Suspect]
     Active Substance: ELEXACAFTOR\IVACAFTOR\TEZACAFTOR
     Dosage: 2 TABS (75 MG IVACAFTOR/ 50 MG TEZACAFTOR/ 100 MG ELEXACAFTOR) IN THE MORNING
     Route: 048
     Dates: start: 2021
  2. KALYDECO [Suspect]
     Active Substance: IVACAFTOR
     Indication: CYSTIC FIBROSIS
     Dosage: (IVACAFTOR 150 MG) PM
     Route: 048
     Dates: start: 2020
  3. KAFTRIO [Suspect]
     Active Substance: ELEXACAFTOR\IVACAFTOR\TEZACAFTOR
     Indication: CYSTIC FIBROSIS
     Dosage: 2 TABS (75 MG IVACAFTOR/ 50 MG TEZACAFTOR/ 100 MG ELEXACAFTOR) IN THE MORNING
     Route: 048
     Dates: start: 2020
  4. KALYDECO [Suspect]
     Active Substance: IVACAFTOR
     Dosage: (IVACAFTOR 150 MG) PM
     Route: 048
     Dates: start: 2021

REACTIONS (3)
  - Mental disorder [Recovering/Resolving]
  - Suicidal ideation [Recovering/Resolving]
  - Feeling abnormal [Recovering/Resolving]
